FAERS Safety Report 5559030-9 (Version None)
Quarter: 2007Q4

REPORT INFORMATION
  Report Type: 
  Country: None (occurrence: None)
  Receive Date: 20071214
  Receipt Date: 20070912
  Transmission Date: 20080405
  Serious: No
  Sender: FDA-Public Use
  Company Number: US-ABBOTT-07P-163-0417291-00

PATIENT
  Sex: Female
  Weight: 77.18 kg

DRUGS (4)
  1. HUMIRA [Suspect]
     Indication: RHEUMATOID ARTHRITIS
     Route: 058
     Dates: start: 20070717
  2. HUMIRA [Suspect]
     Indication: PSORIATIC ARTHROPATHY
  3. DULOXETINE HYDROCHLORIDE [Concomitant]
     Indication: ANXIETY
     Route: 048
  4. RABEPRAZOLE SODIUM [Concomitant]
     Indication: HIATUS HERNIA
     Route: 048

REACTIONS (2)
  - DIZZINESS [None]
  - FATIGUE [None]
